FAERS Safety Report 7629070-4 (Version None)
Quarter: 2011Q3

REPORT INFORMATION
  Report Type: 
  Country: None (occurrence: None)
  Receive Date: 20110722
  Receipt Date: 20110722
  Transmission Date: 20111222
  Serious: Yes (Death)
  Sender: FDA-Public Use
  Company Number: None

PATIENT
  Age: 60 Year
  Sex: Male

DRUGS (30)
  1. ALPRAZOLAM [Interacting]
     Route: 048
  2. FERROUS SULFATE TAB [Interacting]
     Route: 048
  3. OXAZEPAM [Interacting]
     Route: 048
  4. HYDROMORPHONE HCL [Interacting]
     Route: 048
  5. LEVOFLOXACIN [Suspect]
     Indication: VIRAEMIA
     Dosage: 500 MG
     Route: 048
     Dates: start: 20101208, end: 20110108
  6. LEVOFLOXACIN [Suspect]
     Indication: BK VIRUS INFECTION
     Dosage: 500 MG
     Route: 048
     Dates: start: 20101208, end: 20110108
  7. FUROSEMIDE [Interacting]
     Route: 048
  8. WHEAT DEXTRAN [Interacting]
     Route: 048
  9. REGULAR INSULIN [Interacting]
     Route: 058
  10. DOCUSATE SODIUM [Interacting]
     Route: 048
  11. NITROGLYCERIN [Interacting]
     Route: 060
  12. SENNA [Interacting]
     Route: 048
  13. CALCITRIOL [Interacting]
     Route: 048
  14. MULTI-VITAMIN [Interacting]
     Route: 048
  15. SERTRALINE HYDROCHLORIDE [Interacting]
     Route: 048
  16. MYCOPHENOLATE MOFETIL [Concomitant]
     Route: 048
  17. ALLOPURINOL [Interacting]
     Route: 048
  18. PYRIDOXINE HCL [Interacting]
     Route: 048
  19. TACROLIMUS [Concomitant]
     Route: 048
  20. METOPROLOL TARTRATE [Interacting]
     Route: 048
  21. ESOMEPRAZOLE MAGNESIUM [Interacting]
     Route: 017
  22. ATORVASTATIN [Interacting]
  23. ARGATROBAN [Interacting]
     Route: 017
  24. ATOVAQUONE [Interacting]
     Route: 048
  25. VALGANCICLOVIR [Interacting]
  26. PREDNISONE [Concomitant]
     Route: 048
  27. TACROLIMUS [Concomitant]
     Route: 048
  28. ACETAMINOPHEN [Interacting]
     Route: 048
  29. ASPIRIN [Interacting]
     Route: 048
  30. ISONIAZID [Interacting]
     Route: 048

REACTIONS (6)
  - GENERAL PHYSICAL HEALTH DETERIORATION [None]
  - TROUSSEAU'S SYNDROME [None]
  - RESPIRATORY DISORDER [None]
  - HYPERCOAGULATION [None]
  - CEREBROVASCULAR ACCIDENT [None]
  - DISCOMFORT [None]
